FAERS Safety Report 19735998 (Version 2)
Quarter: 2021Q4

REPORT INFORMATION
  Report Type: Spontaneous
  Country: US (occurrence: US)
  Receive Date: 20210823
  Receipt Date: 20211123
  Transmission Date: 20220304
  Serious: Yes (Other)
  Sender: FDA-Public Use
  Company Number: US-HISAMITSU-2021-US-017409

PATIENT
  Age: 43 Year
  Sex: Male
  Weight: 92.08 kg

DRUGS (2)
  1. SALONPAS-HOT CAPSICUM [Suspect]
     Active Substance: CAPSICUM
     Indication: Analgesic therapy
     Dosage: 2 APPLICATIONS, 5 HOURS EACH
     Route: 061
     Dates: start: 20210727, end: 20210728
  2. Multivitamin/mineral tablet [Concomitant]

REACTIONS (1)
  - Application site burn [Unknown]

NARRATIVE: CASE EVENT DATE: 20210728
